FAERS Safety Report 5292068-8 (Version None)
Quarter: 2007Q2

REPORT INFORMATION
  Report Type: 
  Country: None (occurrence: None)
  Receive Date: 20070403
  Receipt Date: 20070318
  Transmission Date: 20071010
  Serious: Yes (Hospitalization)
  Sender: FDA-Public Use
  Company Number: DSA_29437_2007

PATIENT
  Age: 73 Year
  Sex: Female

DRUGS (2)
  1. LORAZEPAM [Suspect]
     Indication: SCHIZOPHRENIA
     Dosage: 1.5 MG Q DAY PO
     Route: 048
     Dates: start: 20060703, end: 20061102
  2. TOFRANIL [Concomitant]

REACTIONS (1)
  - LIVER DISORDER [None]
